FAERS Safety Report 7729065-6 (Version None)
Quarter: 2011Q3

REPORT INFORMATION
  Report Type: 
  Country: None (occurrence: None)
  Receive Date: 20110906
  Receipt Date: 20110822
  Transmission Date: 20111222
  Serious: Yes (Death)
  Sender: FDA-Public Use
  Company Number: JP-PFIZER INC-2011205433

PATIENT
  Age: 60 Year
  Sex: Male
  Weight: 55 kg

DRUGS (8)
  1. CALCIUM LEVOFOLINATE [Concomitant]
     Dosage: MG/BODY (188.7 MG/M2)
     Route: 041
     Dates: start: 20100914, end: 20100928
  2. EFUDEX [Concomitant]
     Indication: COLORECTAL CANCER
     Dosage: 650 MG/BODY (408.8 MG/M2)
     Route: 040
     Dates: start: 20100727, end: 20100727
  3. EFUDEX [Concomitant]
     Dosage: 3900 MG/BODY/D1-2 (2452.8 MG/M2/D1-2)
     Route: 041
     Dates: start: 20100727, end: 20100727
  4. CALCIUM LEVOFOLINATE [Concomitant]
     Indication: COLORECTAL CANCER
     Dosage: 320 MG/BODY (201.3 MG/M2)
     Route: 041
     Dates: start: 20100727, end: 20100727
  5. EFUDEX [Concomitant]
     Dosage: 3700 MG/BODY/D1-2 (2327 MG/M2/D1-2)
     Route: 041
     Dates: start: 20100914, end: 20100928
  6. CAMPTOSAR [Suspect]
     Indication: COLORECTAL CANCER
     Dosage: 240 MG/BODY (150.9 MG/M2)
     Route: 041
     Dates: start: 20100727, end: 20100727
  7. CAMPTOSAR [Suspect]
     Dosage: 230 MG/BODY (144.7 MG/M2)
     Route: 041
     Dates: start: 20100914, end: 20100928
  8. EFUDEX [Concomitant]
     Dosage: 610 MG/BODY (383.6 MG/M2)
     Route: 040
     Dates: start: 20100914, end: 20100928

REACTIONS (5)
  - PNEUMONIA ASPIRATION [None]
  - HAEMOGLOBIN DECREASED [None]
  - ILEUS [None]
  - VOMITING [None]
  - ILEUS PARALYTIC [None]
